FAERS Safety Report 8139907-0 (Version None)
Quarter: 2012Q1

REPORT INFORMATION
  Report Type: 
  Country: None (occurrence: None)
  Receive Date: 20120215
  Receipt Date: 20120207
  Transmission Date: 20120608
  Serious: Yes (Death, Hospitalization)
  Sender: FDA-Public Use
  Company Number: CH-ROCHE-780249

PATIENT
  Age: 73 Year
  Sex: Male
  Weight: 70 kg

DRUGS (12)
  1. MABTHERA [Suspect]
     Indication: CHRONIC LYMPHOCYTIC LEUKAEMIA
     Route: 042
  2. DEANXIT [Concomitant]
     Dosage: 0.5MG+10MG
     Dates: start: 20100101, end: 20110531
  3. ALLOPURINOL [Concomitant]
     Dates: start: 20110302, end: 20110531
  4. MABTHERA [Suspect]
     Route: 042
     Dates: start: 20110330, end: 20110525
  5. TAMSULOSIN HCL [Concomitant]
     Dates: start: 20110101, end: 20110531
  6. CYCLOPHOSPHAMIDE [Suspect]
     Dosage: DAY:1-3
     Route: 042
     Dates: start: 20110330, end: 20110527
  7. CYCLOPHOSPHAMIDE [Suspect]
     Indication: CHRONIC LYMPHOCYTIC LEUKAEMIA
     Dosage: DAY:1-3
     Route: 042
  8. ATORVASTATIN CALCIUM [Concomitant]
     Dates: start: 20020101, end: 20110531
  9. BACTRIM DS [Concomitant]
     Dates: start: 20110302, end: 20110531
  10. FLUDARABINE PHOSPHATE [Suspect]
     Dosage: DAY:1-3
     Route: 042
     Dates: start: 20110330, end: 20110527
  11. MARCOUMAR [Concomitant]
     Dosage: TDD: GEMASS INR
     Dates: start: 20020101, end: 20110524
  12. FLUDARABINE PHOSPHATE [Suspect]
     Indication: CHRONIC LYMPHOCYTIC LEUKAEMIA
     Dosage: DAY:1-3
     Route: 042

REACTIONS (2)
  - DYSPNOEA [None]
  - SUDDEN DEATH [None]
